FAERS Safety Report 5249138-X (Version None)
Quarter: 2007Q1

REPORT INFORMATION
  Report Type: 
  Country: None (occurrence: None)
  Receive Date: 20070228
  Receipt Date: 20070221
  Transmission Date: 20070707
  Serious: Yes (Hospitalization, Disabling, Other)
  Sender: FDA-Public Use
  Company Number: PHHO2007DE00512

PATIENT
  Sex: Female
  Weight: 57 kg

DRUGS (5)
  1. ZOLEDRONIC ACID [Suspect]
     Indication: BREAST CANCER
     Dosage: 4MG EVERY 3 MONTHS
     Route: 042
     Dates: start: 20061018, end: 20070110
  2. CALCIMAGON-D3 [Suspect]
     Dates: start: 20061018
  3. TAMOXIFEN CITRATE [Concomitant]
     Dates: start: 20061018
  4. GEMCITABINE [Suspect]
     Dosage: 1000 MG, UNK
     Route: 042
     Dates: start: 20060724, end: 20060911
  5. DOCETAXEL [Suspect]
     Indication: BREAST CANCER
     Dosage: 75 MG, UNK
     Route: 042
     Dates: start: 20060724, end: 20060904

REACTIONS (6)
  - ARTHROPATHY [None]
  - ARTHROSCOPY [None]
  - CHONDROPATHY [None]
  - LOOSE TOOTH [None]
  - MENISCUS LESION [None]
  - OSTEONECROSIS [None]
